FAERS Safety Report 15758513 (Version 1)
Quarter: 2018Q4

REPORT INFORMATION
  Report Type: Spontaneous
  Country: NO (occurrence: NO)
  Receive Date: 20181225
  Receipt Date: 20181225
  Transmission Date: 20190205
  Serious: Yes (Hospitalization, Other)
  Sender: FDA-Public Use
  Company Number: NO-BAUSCH-BL-2018-035777

PATIENT
  Age: 4 Month
  Sex: Male

DRUGS (4)
  1. LOCOID [Suspect]
     Active Substance: HYDROCORTISONE BUTYRATE
     Indication: DERMATITIS ATOPIC
     Dosage: DOSE REDUCED
     Route: 061
     Dates: start: 2018
  2. CANODERM [Suspect]
     Active Substance: UREA
     Indication: DERMATITIS ATOPIC
     Dosage: 2-4 TIMES DAILY ALL OVER THE BODY
     Route: 061
     Dates: start: 20181121, end: 20181126
  3. LOCOID [Suspect]
     Active Substance: HYDROCORTISONE BUTYRATE
     Indication: SEBORRHOEIC DERMATITIS
     Dosage: ON THE SCALP AND ALSO ON THE BODY
     Route: 061
     Dates: start: 20181121
  4. CANODERM [Suspect]
     Active Substance: UREA
     Indication: SEBORRHOEIC DERMATITIS

REACTIONS (4)
  - Urinary tract infection [Unknown]
  - Dehydration [Unknown]
  - Blood urea increased [Unknown]
  - Renal failure [Unknown]

NARRATIVE: CASE EVENT DATE: 201811
